FAERS Safety Report 9759789 (Version 2)
Quarter: 2013Q4

REPORT INFORMATION
  Report Type: Spontaneous
  Country: US (occurrence: US)
  Receive Date: 20131216
  Receipt Date: 20131216
  Transmission Date: 20140711
  Serious: Yes (Hospitalization)
  Sender: FDA-Public Use
  Company Number: US-GILEAD-2010-0029018

PATIENT
  Age: 83 Year
  Sex: Male

DRUGS (14)
  1. LETAIRIS [Suspect]
     Indication: PULMONARY ARTERIAL HYPERTENSION
     Route: 048
     Dates: start: 20080125
  2. REVATIO [Concomitant]
  3. COUMADIN [Concomitant]
  4. HCTZ [Concomitant]
  5. LASIX [Concomitant]
  6. LISINOPRIL [Concomitant]
  7. DIGOXIN [Concomitant]
  8. XALATAN [Concomitant]
  9. BACTRIM DS [Concomitant]
  10. PROCRIT [Concomitant]
  11. FERROUS SULFATE [Concomitant]
  12. FLOMAX [Concomitant]
  13. TRAZODONE [Concomitant]
  14. POTASSIUM CHLORIDE [Concomitant]

REACTIONS (1)
  - Anaemia [Unknown]
